FAERS Safety Report 9288082 (Version 1)
Quarter: 2013Q2

REPORT INFORMATION
  Report Type: Spontaneous
  Country: US (occurrence: None)
  Receive Date: 20130513
  Receipt Date: 20130513
  Transmission Date: 20140414
  Serious: Yes (Other)
  Sender: FDA-Public Use
  Company Number: None

PATIENT
  Sex: Male

DRUGS (1)
  1. INLYTA [Suspect]
     Route: 048
     Dates: start: 20130419, end: 20130510

REACTIONS (2)
  - Nausea [None]
  - Dizziness [None]
